FAERS Safety Report 10672765 (Version 1)
Quarter: 2014Q4

REPORT INFORMATION
  Report Type: Report from Study
  Country: HU (occurrence: HU)
  Receive Date: 20141223
  Receipt Date: 20141223
  Transmission Date: 20150529
  Serious: Yes (Hospitalization, Other)
  Sender: FDA-Public Use
  Company Number: HU-BAYER-2014-185250

PATIENT
  Age: 37 Year
  Sex: Female

DRUGS (1)
  1. MIRENA [Suspect]
     Active Substance: LEVONORGESTREL
     Dosage: 20 MCG/24HR, CONT
     Route: 015
     Dates: start: 20140723, end: 20141017

REACTIONS (9)
  - Peritonitis [Recovering/Resolving]
  - Cervix erythema [None]
  - Pyrexia [Recovering/Resolving]
  - Appendicitis [Recovering/Resolving]
  - Device dislocation [Recovered/Resolved]
  - Salpingo-oophoritis [Recovering/Resolving]
  - Purulence [Recovering/Resolving]
  - Multiple use of single-use product [Recovered/Resolved]
  - Abdominal pain lower [Recovering/Resolving]

NARRATIVE: CASE EVENT DATE: 20141015
